FAERS Safety Report 20825438 (Version 1)
Quarter: 2022Q2

REPORT INFORMATION
  Report Type: Spontaneous
  Country: US (occurrence: US)
  Receive Date: 20220513
  Receipt Date: 20220513
  Transmission Date: 20220721
  Serious: No
  Sender: FDA-Public Use
  Company Number: US-GSKCCFUS-Case-01374168_AE-79414

PATIENT
  Sex: Male

DRUGS (1)
  1. TRELEGY ELLIPTA [Suspect]
     Active Substance: FLUTICASONE FUROATE\UMECLIDINIUM BROMIDE\VILANTEROL TRIFENATATE
     Indication: Chronic obstructive pulmonary disease
     Dosage: 200 MCG/MG
     Dates: start: 202204

REACTIONS (4)
  - Dyspnoea exertional [Unknown]
  - Drug ineffective [Unknown]
  - Prescribed overdose [Unknown]
  - Incorrect dose administered [Unknown]
